FAERS Safety Report 8994057 (Version 1)
Quarter: 2013Q1

REPORT INFORMATION
  Report Type: Spontaneous
  Country: US (occurrence: US)
  Receive Date: 20130102
  Receipt Date: 20130102
  Transmission Date: 20140127
  Serious: No
  Sender: FDA-Public Use
  Company Number: US-AMGEN-USASP2012081830

PATIENT
  Sex: Female

DRUGS (3)
  1. ENBREL [Suspect]
     Indication: RHEUMATOID ARTHRITIS
     Dosage: 25 MG, BI WEEKLY
     Dates: start: 20101001
  2. DICLOFENAC [Concomitant]
     Dosage: UNK
  3. SULINDAC [Concomitant]
     Dosage: UNK

REACTIONS (5)
  - Haemoglobin decreased [Recovered/Resolved]
  - Blood iron decreased [Recovered/Resolved]
  - Diarrhoea [Not Recovered/Not Resolved]
  - Blood count abnormal [Unknown]
  - Dyspnoea [Unknown]
